FAERS Safety Report 6672060-9 (Version None)
Quarter: 2010Q2

REPORT INFORMATION
  Report Type: 
  Country: None (occurrence: None)
  Receive Date: 20100406
  Receipt Date: 20100330
  Transmission Date: 20101027
  Serious: Yes (Death)
  Sender: FDA-Public Use
  Company Number: 2010JP000961

PATIENT
  Sex: Female
  Weight: 48 kg

DRUGS (8)
  1. PROGRAF [Suspect]
     Indication: RHEUMATOID ARTHRITIS
     Dosage: 1 MG, UID/QD, ORAL
     Route: 048
     Dates: start: 20071109
  2. RHEUMATREX [Suspect]
     Indication: RHEUMATOID ARTHRITIS
     Dosage: 4 MG, WEEKLY, ORAL
     Route: 048
     Dates: start: 20031001, end: 20090918
  3. PREDNISOLONE [Concomitant]
  4. ASTOS CA (ASPARTATE CALCIUM) [Concomitant]
  5. CALFINA (ALFACALCIDOL) [Concomitant]
  6. BONALON (ALENDRONIC ACID) [Concomitant]
  7. LIMETHASON (DEXAMETHASONE PALMITATE) [Concomitant]
  8. SWORD (PRULIFLOXACIN) [Concomitant]

REACTIONS (3)
  - HEPATIC FUNCTION ABNORMAL [None]
  - LYMPHOMA [None]
  - PNEUMONIA BACTERIAL [None]
